FAERS Safety Report 10979488 (Version 1)
Quarter: 2015Q2

REPORT INFORMATION
  Report Type: Spontaneous
  Country: AU (occurrence: AU)
  Receive Date: 20150402
  Receipt Date: 20150402
  Transmission Date: 20150821
  Serious: Yes (Other)
  Sender: FDA-Public Use
  Company Number: AU-BAYER-2015-075330

PATIENT

DRUGS (8)
  1. ASPRO [Suspect]
     Active Substance: ASPIRIN\SODIUM BICARBONATE
     Dosage: UNK
  2. CLOPIDOGREL [Suspect]
     Active Substance: CLOPIDOGREL BISULFATE
  3. CYPROTERONE [Concomitant]
     Active Substance: CYPROTERONE
  4. AMOXICILLIN. [Suspect]
     Active Substance: AMOXICILLIN
  5. BICALUTAMIDE. [Concomitant]
     Active Substance: BICALUTAMIDE
  6. PARACETAMOL [Suspect]
     Active Substance: ACETAMINOPHEN
  7. IRBESARTAN. [Suspect]
     Active Substance: IRBESARTAN
  8. EZETIMIBE. [Suspect]
     Active Substance: EZETIMIBE

REACTIONS (1)
  - Drug-induced liver injury [None]
